FAERS Safety Report 4740803-7 (Version None)
Quarter: 2005Q3

REPORT INFORMATION
  Report Type: 
  Country: None (occurrence: None)
  Receive Date: 20050810
  Receipt Date: 20040628
  Transmission Date: 20060218
  Serious: No
  Sender: FDA-Public Use
  Company Number: US-GLAXOSMITHKLINE-A0516274A

PATIENT
  Age: 12 Year
  Sex: Male

DRUGS (1)
  1. TAGAMET [Suspect]

REACTIONS (2)
  - DEPRESSION [None]
  - NAUSEA [None]
